FAERS Safety Report 21968139 (Version 1)
Quarter: 2023Q1

REPORT INFORMATION
  Report Type: Spontaneous
  Country: US (occurrence: US)
  Receive Date: 20230208
  Receipt Date: 20230208
  Transmission Date: 20230418
  Serious: No
  Sender: FDA-Public Use
  Company Number: US-ARBOR PHARMACEUTICALS, LLC-US-2022ARB000064

PATIENT
  Sex: Female

DRUGS (3)
  1. EDARBYCLOR [Suspect]
     Active Substance: AZILSARTAN KAMEDOXOMIL\CHLORTHALIDONE
     Indication: Blood pressure management
     Dosage: 40/12.5 MG
  2. EDARBYCLOR [Suspect]
     Active Substance: AZILSARTAN KAMEDOXOMIL\CHLORTHALIDONE
     Dosage: 40/12.5 MG CUT INTO HALF
  3. EDARBYCLOR [Suspect]
     Active Substance: AZILSARTAN KAMEDOXOMIL\CHLORTHALIDONE
     Dosage: 40/12.5 MG CUT INTO QUARTER

REACTIONS (3)
  - Blood pressure decreased [Unknown]
  - Wrong technique in product usage process [Unknown]
  - Off label use [Unknown]
